FAERS Safety Report 7430843-1 (Version None)
Quarter: 2011Q2

REPORT INFORMATION
  Report Type: 
  Country: None (occurrence: None)
  Receive Date: 20110421
  Receipt Date: 20110325
  Transmission Date: 20111010
  Serious: No
  Sender: FDA-Public Use
  Company Number: US-BAYER-2011-027290

PATIENT
  Weight: 77.098 kg

DRUGS (5)
  1. VYTORIN [Concomitant]
     Route: 048
  2. SYNTHROID [Concomitant]
     Route: 048
  3. ELAVIL [Concomitant]
     Route: 048
  4. ALEVE (CAPLET) [Suspect]
     Indication: ARTHRALGIA
     Dosage: BOTTLE COUNT 160S
     Route: 048
  5. ASPIRIN [Concomitant]
     Route: 048

REACTIONS (1)
  - TINNITUS [None]
